FAERS Safety Report 7756780 (Version 2)
Quarter: 2013Q2

REPORT INFORMATION
  Report Type: Report from Study
  Country: MX (occurrence: MX)
  Receive Date: 20110112
  Receipt Date: 20130523
  Transmission Date: 20140414
  Serious: Yes (Other)
  Sender: FDA-Public Use
  Company Number: PHHY2011MX01816

PATIENT
  Age: 67 Year
  Sex: Female

DRUGS (3)
  1. ACLASTA [Suspect]
     Indication: OSTEOPOROSIS
     Dosage: 5 MG/100 ML, A YEAR
     Route: 042
     Dates: start: 2009
  2. ACLASTA [Suspect]
     Dosage: 5 MG/100 ML, A YEAR
     Route: 042
  3. ACLASTA [Suspect]
     Dosage: 5 MG/100 ML, A YEAR
     Route: 042
     Dates: start: 201201

REACTIONS (1)
  - Hand fracture [Recovered/Resolved]
